FAERS Safety Report 25405269 (Version 3)
Quarter: 2025Q3

REPORT INFORMATION
  Report Type: Spontaneous
  Country: EU (occurrence: EU)
  Receive Date: 20250606
  Receipt Date: 20250804
  Transmission Date: 20251021
  Serious: Yes (Death, Life-Threatening, Hospitalization)
  Sender: MERCK SHARP & DOHME LLC
  Company Number: None

PATIENT
  Age: 74 Year
  Sex: Female
  Weight: 43 kg

DRUGS (11)
  1. PEMBROLIZUMAB [Suspect]
     Active Substance: PEMBROLIZUMAB
     Indication: Cholangiocarcinoma
     Dosage: 200MG EVERY 21 DAYS
     Route: 042
     Dates: start: 20250204, end: 20250325
  2. FENTANYL [Concomitant]
     Active Substance: FENTANYL
  3. ONDANSETRON [Concomitant]
     Active Substance: ONDANSETRON
  4. CISPLATIN [Concomitant]
     Active Substance: CISPLATIN
     Route: 042
  5. CALCIFEDIOL [Concomitant]
     Active Substance: CALCIFEDIOL
     Route: 048
  6. GEMCITABINE [Concomitant]
     Active Substance: GEMCITABINE
     Route: 042
  7. ATORVASTATIN [Concomitant]
     Active Substance: ATORVASTATIN
     Route: 048
  8. DEXAMETHASONE [Concomitant]
     Active Substance: DEXAMETHASONE
  9. LOSARTAN [Concomitant]
     Active Substance: LOSARTAN
     Route: 048
  10. CALCIUM\VITAMIN D [Concomitant]
     Active Substance: CALCIUM\VITAMIN D
     Route: 048
  11. APREPITANT [Concomitant]
     Active Substance: APREPITANT
     Route: 048

REACTIONS (1)
  - Immune-mediated nephritis [Fatal]

NARRATIVE: CASE EVENT DATE: 20250421
